FAERS Safety Report 13428730 (Version 1)
Quarter: 2017Q2

REPORT INFORMATION
  Report Type: Spontaneous
  Country: ES (occurrence: ES)
  Receive Date: 20170411
  Receipt Date: 20170411
  Transmission Date: 20170830
  Serious: Yes (Other)
  Sender: FDA-Public Use
  Company Number: ES-TAKEDA-2017TUS005805

PATIENT
  Age: 27 Year
  Sex: Male

DRUGS (1)
  1. BRINTELLIX [Suspect]
     Active Substance: VORTIOXETINE HYDROBROMIDE
     Indication: PRODUCT USED FOR UNKNOWN INDICATION
     Dosage: 10 MG, BID
     Route: 065
     Dates: start: 201701

REACTIONS (7)
  - Headache [Unknown]
  - Constipation [Unknown]
  - Cognitive disorder [Unknown]
  - Myoclonic epilepsy [Unknown]
  - Nausea [Unknown]
  - Drug ineffective [Unknown]
  - Pruritus [Unknown]
